FAERS Safety Report 7636824-7 (Version None)
Quarter: 2011Q3

REPORT INFORMATION
  Report Type: 
  Country: None (occurrence: None)
  Receive Date: 20110726
  Receipt Date: 20110711
  Transmission Date: 20111222
  Serious: Yes (Hospitalization)
  Sender: FDA-Public Use
  Company Number: FR-WATSON-2011-11069

PATIENT
  Age: 73 Year
  Sex: Male

DRUGS (3)
  1. AZATHIOPRINE [Suspect]
     Indication: ARTHRITIS
     Dosage: UNK
  2. HYDROXYCHLOROQUINE SULFATE [Suspect]
     Indication: WHIPPLE'S DISEASE
     Dosage: UNK
  3. CEFTRIAXONE [Suspect]
     Indication: WHIPPLE'S DISEASE
     Dosage: UNK

REACTIONS (2)
  - IMMUNE RECONSTITUTION SYNDROME [None]
  - WHIPPLE'S DISEASE [None]
